FAERS Safety Report 5027702-0 (Version None)
Quarter: 2006Q2

REPORT INFORMATION
  Report Type: 
  Country: None (occurrence: None)
  Receive Date: 20060428
  Receipt Date: 20060210
  Transmission Date: 20061013
  Serious: No
  Sender: FDA-Public Use
  Company Number: COT_0400_2006

PATIENT
  Age: 67 Year
  Sex: Female
  Weight: 61.2356 kg

DRUGS (19)
  1. VENTAVIS [Suspect]
     Indication: PULMONARY HYPERTENSION
     Dosage: 5 MCG 6XD IH
     Dates: start: 20060103
  2. COUMADIN [Concomitant]
  3. VITAMIN B6 [Concomitant]
  4. DEMADEX [Concomitant]
  5. MAG-OX [Concomitant]
  6. PRILOSEC [Concomitant]
  7. SYNTHROID [Concomitant]
  8. SILDENAFIL [Concomitant]
  9. GLYCOLAX [Concomitant]
  10. ZOLOFT [Concomitant]
  11. HUMULIN 70/30 [Concomitant]
  12. CENTRUM SILVER [Concomitant]
  13. FOLIC ACID [Concomitant]
  14. DIGOXIN [Concomitant]
  15. XANAX [Concomitant]
  16. REGLAN [Concomitant]
  17. CLARITIN [Concomitant]
  18. LACTULOSE [Concomitant]
  19. NEURONTIN [Concomitant]

REACTIONS (1)
  - ORAL CANDIDIASIS [None]
